FAERS Safety Report 10260213 (Version 2)
Quarter: 2014Q2

REPORT INFORMATION
  Report Type: Spontaneous
  Country: US (occurrence: US)
  Receive Date: 20140625
  Receipt Date: 20140625
  Transmission Date: 20141212
  Serious: No
  Sender: FDA-Public Use
  Company Number: US-SANOFI-AVENTIS-2013SA052304

PATIENT
  Age: 44 Year
  Sex: Female

DRUGS (2)
  1. AUBAGIO [Suspect]
     Indication: MULTIPLE SCLEROSIS
     Dosage: TAKEN FROM:1 MONTH AGO
     Route: 048
     Dates: end: 20130517
  2. AUBAGIO [Suspect]
     Indication: MULTIPLE SCLEROSIS
     Dosage: DATE TAKEN FROM MENTIONED AS 29-FEB-2014 WHICH IS INVALID. SO DATE TAKEN FROM HAS BEEN TAKEN AS UNK
     Route: 048

REACTIONS (8)
  - Flushing [Recovering/Resolving]
  - Burning sensation [Recovering/Resolving]
  - Diarrhoea [Recovering/Resolving]
  - Insomnia [Unknown]
  - Fatigue [Unknown]
  - Eating disorder [Unknown]
  - Decreased appetite [Unknown]
  - Weight decreased [Unknown]
